FAERS Safety Report 8100187-3 (Version None)
Quarter: 2012Q1

REPORT INFORMATION
  Report Type: 
  Country: None (occurrence: None)
  Receive Date: 20120129
  Receipt Date: 20111229
  Transmission Date: 20120608
  Serious: No
  Sender: FDA-Public Use
  Company Number: US-ABBOTT-11P-163-0852729-00

PATIENT

DRUGS (7)
  1. LOMOTIL [Concomitant]
     Indication: PRODUCT USED FOR UNKNOWN INDICATION
  2. VITAMIN B-12 [Concomitant]
     Indication: PRODUCT USED FOR UNKNOWN INDICATION
  3. ONDANSETRON HCL [Concomitant]
     Indication: PRODUCT USED FOR UNKNOWN INDICATION
  4. UNKNOWN ASTHMA MEDICATION [Concomitant]
     Indication: ASTHMA
  5. APRISO [Concomitant]
     Indication: PRODUCT USED FOR UNKNOWN INDICATION
  6. HUMIRA [Suspect]
     Indication: PRODUCT USED FOR UNKNOWN INDICATION
  7. UNKNOWN MIGRAINE MEDICATION [Concomitant]
     Indication: MIGRAINE

REACTIONS (3)
  - INCISIONAL DRAINAGE [None]
  - PERIRECTAL ABSCESS [None]
  - MIGRAINE [None]
